FAERS Safety Report 13916807 (Version 1)
Quarter: 2017Q3

REPORT INFORMATION
  Report Type: Report from Study
  Country: BE (occurrence: BE)
  Receive Date: 20170829
  Receipt Date: 20170829
  Transmission Date: 20171127
  Serious: Yes (Hospitalization, Other)
  Sender: FDA-Public Use
  Company Number: BE-AMGEN-BELNI2017007565

PATIENT
  Age: 43 Year
  Sex: Female

DRUGS (6)
  1. BLINATUMOMAB [Suspect]
     Active Substance: BLINATUMOMAB
     Indication: DIFFUSE LARGE B-CELL LYMPHOMA STAGE III
     Dosage: 9 MUG, CONTINUOUS INFUSION
     Route: 042
     Dates: start: 20161229
  2. FLAGYL [Concomitant]
     Active Substance: METRONIDAZOLE\METRONIDAZOLE HYDROCHLORIDE
     Dosage: UNK
     Route: 048
     Dates: start: 20170102, end: 20170111
  3. BLINATUMOMAB [Suspect]
     Active Substance: BLINATUMOMAB
     Dosage: 28 MUG, CONTINUOUS INFUSION
     Route: 042
     Dates: start: 201701
  4. BLINATUMOMAB [Suspect]
     Active Substance: BLINATUMOMAB
     Dosage: 112 MUG, CONTINUOUS INFUSION
     Route: 042
     Dates: start: 201701, end: 2017
  5. DEXAMETHASONE. [Concomitant]
     Active Substance: DEXAMETHASONE
     Dosage: 20 MG, UNK
  6. ALLOPURINOL. [Concomitant]
     Active Substance: ALLOPURINOL
     Dosage: UNK

REACTIONS (6)
  - Renal impairment [Unknown]
  - Tubulointerstitial nephritis [Unknown]
  - Speech disorder [Recovered/Resolved]
  - Cytokine release syndrome [Unknown]
  - Chronic kidney disease [Unknown]
  - Device related sepsis [Recovered/Resolved]

NARRATIVE: CASE EVENT DATE: 2017
